FAERS Safety Report 9698964 (Version 2)
Quarter: 2013Q4

REPORT INFORMATION
  Report Type: Spontaneous
  Country: FR (occurrence: FR)
  Receive Date: 20131120
  Receipt Date: 20131120
  Transmission Date: 20140711
  Serious: Yes (Hospitalization)
  Sender: FDA-Public Use
  Company Number: FR-ROCHE-1292712

PATIENT
  Sex: Male
  Weight: 64 kg

DRUGS (5)
  1. ZELBORAF [Suspect]
     Indication: PRODUCT USED FOR UNKNOWN INDICATION
     Dosage: IN THE MORNING AND IN THE EVENING
     Route: 048
     Dates: start: 20130920
  2. SIMVASTATINE [Concomitant]
     Indication: HYPERCHOLESTEROLAEMIA
     Route: 048
  3. PREVISCAN (FRANCE) [Concomitant]
     Indication: ATRIAL FIBRILLATION
     Route: 048
     Dates: end: 20131020
  4. RAMIPRIL [Concomitant]
     Indication: HYPERTENSION
     Route: 048
  5. BISOPROLOL [Concomitant]
     Indication: HYPERTENSION
     Route: 048

REACTIONS (2)
  - Drug interaction [Unknown]
  - International normalised ratio increased [Not Recovered/Not Resolved]
